FAERS Safety Report 25534737 (Version 2)
Quarter: 2025Q3

REPORT INFORMATION
  Report Type: Spontaneous
  Country: GB (occurrence: GB)
  Receive Date: 20250709
  Receipt Date: 20250805
  Transmission Date: 20251020
  Serious: Yes (Hospitalization)
  Sender: ACCORD
  Company Number: GB-Accord-493398

PATIENT
  Age: 71 Year
  Sex: Female
  Weight: 66.0 kg

DRUGS (5)
  1. RAMIPRIL [Suspect]
     Active Substance: RAMIPRIL
     Indication: Hypertension
     Route: 048
     Dates: start: 20250304
  2. CARVEDILOL [Suspect]
     Active Substance: CARVEDILOL
     Indication: Prophylaxis
     Route: 048
     Dates: start: 2024
  3. DISITAMAB VEDOTIN [Suspect]
     Active Substance: DISITAMAB VEDOTIN
     Indication: Breast cancer
     Route: 042
     Dates: start: 20250408, end: 20250508
  4. TUCATINIB [Concomitant]
     Active Substance: TUCATINIB
     Indication: Breast cancer
     Route: 048
     Dates: start: 20250415, end: 20250515
  5. CARVEDILOL [Suspect]
     Active Substance: CARVEDILOL
     Indication: Prophylaxis
     Route: 048
     Dates: start: 2024

REACTIONS (2)
  - Sinus tachycardia [Recovered/Resolved]
  - Hyponatraemia [Recovered/Resolved]

NARRATIVE: CASE EVENT DATE: 20250514
